FAERS Safety Report 9070775 (Version 8)
Quarter: 2013Q3

REPORT INFORMATION
  Report Type: Spontaneous
  Country: DE (occurrence: DE)
  Receive Date: 20130129
  Receipt Date: 20130703
  Transmission Date: 20140515
  Serious: Yes (Hospitalization, Other)
  Sender: FDA-Public Use
  Company Number: DE-JNJFOC-20130112984

PATIENT
  Age: 70 Year
  Sex: Male
  Weight: 75 kg

DRUGS (9)
  1. ZYTIGA [Suspect]
     Indication: HORMONE-REFRACTORY PROSTATE CANCER
     Dosage: 250 MG X 4 TABLETS
     Route: 048
     Dates: start: 20121005, end: 20121219
  2. ZOLADEX [Concomitant]
     Route: 065
     Dates: start: 201210
  3. XGEVA [Concomitant]
     Route: 065
     Dates: start: 201210
  4. XGEVA [Concomitant]
     Route: 065
     Dates: start: 201204
  5. PREDNISON [Concomitant]
     Indication: PRODUCT USED FOR UNKNOWN INDICATION
     Route: 065
     Dates: start: 201210
  6. THYRONAJOD [Concomitant]
     Route: 065
  7. CALCIUM [Concomitant]
     Dosage: 2 PER DAY OR 3 PER DAY
     Route: 065
  8. CORTISONE [Concomitant]
     Indication: DIURETIC THERAPY
     Route: 065
  9. CORTISONE [Concomitant]
     Indication: DIURETIC THERAPY
     Route: 065

REACTIONS (4)
  - Alveolitis allergic [Recovered/Resolved with Sequelae]
  - Type 2 diabetes mellitus [Unknown]
  - Staphylococcal infection [Unknown]
  - Hernia [Unknown]
